FAERS Safety Report 8598632-2 (Version None)
Quarter: 2012Q3

REPORT INFORMATION
  Report Type: 
  Country: None (occurrence: None)
  Receive Date: 20120816
  Receipt Date: 20120810
  Transmission Date: 20120928
  Serious: Yes (Other)
  Sender: FDA-Public Use
  Company Number: US-PFIZER INC-2012182949

PATIENT
  Age: 33 Year
  Sex: Female
  Weight: 58.957 kg

DRUGS (5)
  1. PRISTIQ [Suspect]
     Dosage: UNK
     Route: 048
     Dates: start: 20120101
  2. PRISTIQ [Suspect]
     Dosage: 50 MG, DAILY
     Route: 048
     Dates: start: 20110801, end: 20120101
  3. BENTYL [Concomitant]
     Indication: GASTROOESOPHAGEAL REFLUX DISEASE
     Dosage: 20 MG, 2X/DAY
  4. PREVACID [Concomitant]
     Indication: GASTROOESOPHAGEAL REFLUX DISEASE
     Dosage: 30 MG, 2X/DAY
  5. VIIBRYD [Suspect]
     Dosage: UNK
     Dates: start: 20120101, end: 20120101

REACTIONS (20)
  - DEPRESSION [None]
  - CONFUSIONAL STATE [None]
  - DRUG DOSE OMISSION [None]
  - NERVOUS SYSTEM DISORDER [None]
  - ABNORMAL BEHAVIOUR [None]
  - MALAISE [None]
  - DRUG INEFFECTIVE [None]
  - SUICIDAL IDEATION [None]
  - IRRITABILITY [None]
  - PALPITATIONS [None]
  - TREMOR [None]
  - CRYING [None]
  - DIZZINESS [None]
  - COGNITIVE DISORDER [None]
  - WITHDRAWAL SYNDROME [None]
  - ACTIVITIES OF DAILY LIVING IMPAIRED [None]
  - EMOTIONAL DISORDER [None]
  - FEELING ABNORMAL [None]
  - NAUSEA [None]
  - DIARRHOEA [None]
